FAERS Safety Report 13877941 (Version 4)
Quarter: 2018Q3

REPORT INFORMATION
  Report Type: Not Available
  Country: CA (occurrence: CA)
  Receive Date: 20170817
  Receipt Date: 20180829
  Transmission Date: 20181010
  Serious: Yes (Other)
  Sender: FDA-Public Use
  Company Number: CA-CELGENEUS-CAN-20170801347

PATIENT
  Age: 62 Year
  Sex: Male

DRUGS (4)
  1. REVLIMID [Suspect]
     Active Substance: LENALIDOMIDE
     Indication: PLASMA CELL MYELOMA
     Dosage: 10 MILLIGRAM
     Route: 048
  2. DEXAMETHASONE. [Suspect]
     Active Substance: DEXAMETHASONE
     Indication: PLASMA CELL MYELOMA
     Dosage: 40 MILLIGRAM
     Route: 065
  3. CYCLOPHOSPHAMIDE. [Suspect]
     Active Substance: CYCLOPHOSPHAMIDE
     Indication: PLASMA CELL MYELOMA
     Route: 065
  4. VELCADE [Suspect]
     Active Substance: BORTEZOMIB
     Indication: PLASMA CELL MYELOMA
     Dosage: 1.5 MILLIGRAM/SQ. METER
     Route: 041
     Dates: start: 201608

REACTIONS (10)
  - Secondary amyloidosis [Unknown]
  - Gastritis [Unknown]
  - Abdominal discomfort [Not Recovered/Not Resolved]
  - Incorrect dose administered [Unknown]
  - Urine abnormality [Not Recovered/Not Resolved]
  - Adenoma benign [Unknown]
  - Anaemia [Not Recovered/Not Resolved]
  - Therapy non-responder [Unknown]
  - Hepatitis B antibody positive [Not Recovered/Not Resolved]
  - Therapy partial responder [Unknown]
